FAERS Safety Report 9339479 (Version 2)
Quarter: 2013Q3

REPORT INFORMATION
  Report Type: Report from Study
  Country: US (occurrence: US)
  Receive Date: 20130610
  Receipt Date: 20130719
  Transmission Date: 20140515
  Serious: Yes (Other)
  Sender: FDA-Public Use
  Company Number: US-SANOFI-AVENTIS-2013SA057765

PATIENT
  Age: 36 Year
  Sex: Female
  Weight: 57 kg

DRUGS (11)
  1. AUBAGIO [Suspect]
     Indication: MULTIPLE SCLEROSIS
     Route: 048
     Dates: start: 201212, end: 20130601
  2. LEVOGEL [Concomitant]
     Indication: HYPOTHYROIDISM
     Dates: start: 2005
  3. CYMBALTA [Concomitant]
     Indication: ANTIDEPRESSANT THERAPY
     Dates: start: 2008
  4. MAGNESIUM [Concomitant]
     Indication: NUTRITIONAL SUPPLEMENTATION
     Dates: start: 2008
  5. BIOTIN [Concomitant]
     Indication: NUTRITIONAL SUPPLEMENTATION
     Dates: start: 2011
  6. TOPIRAMATE [Concomitant]
     Dates: start: 2009
  7. CALCIUM [Concomitant]
     Dates: start: 2008
  8. BACLOFEN [Concomitant]
     Indication: MUSCLE TIGHTNESS
  9. BACLOFEN [Concomitant]
     Indication: MUSCLE SPASTICITY
  10. ENABLEX [Concomitant]
     Indication: BLADDER DISORDER
     Dates: start: 2011
  11. ENABLEX [Concomitant]
     Indication: MICTURITION URGENCY
     Dates: start: 2011

REACTIONS (6)
  - Multiple sclerosis relapse [Recovered/Resolved]
  - Muscular weakness [Recovered/Resolved]
  - Gait disturbance [Recovered/Resolved]
  - Paraesthesia [Recovered/Resolved]
  - Fatigue [Recovered/Resolved]
  - Cognitive disorder [Recovered/Resolved]
